FAERS Safety Report 23367126 (Version 1)
Quarter: 2024Q1

REPORT INFORMATION
  Report Type: Spontaneous
  Country: US (occurrence: None)
  Receive Date: 20240104
  Receipt Date: 20240104
  Transmission Date: 20240410
  Serious: No
  Sender: FDA-Public Use
  Company Number: None

PATIENT
  Age: 68 Year
  Sex: Male
  Weight: 58.97 kg

DRUGS (2)
  1. HUMIRA [Suspect]
     Active Substance: ADALIMUMAB
     Indication: Rheumatoid arthritis
     Dosage: OTHER FREQUENCY : Q 2WKS;?
     Route: 058
     Dates: start: 202110
  2. HUMIRA [Suspect]
     Active Substance: ADALIMUMAB
     Indication: Osteoporosis

REACTIONS (1)
  - Lung disorder [None]
